FAERS Safety Report 7245414-X (Version None)
Quarter: 2011Q1

REPORT INFORMATION
  Report Type: 
  Country: None (occurrence: None)
  Receive Date: 20110126
  Receipt Date: 20110124
  Transmission Date: 20110831
  Serious: Yes (Other)
  Sender: FDA-Public Use
  Company Number: US-AMGEN-USASP2011004510

PATIENT
  Age: 73 Year
  Sex: Female

DRUGS (2)
  1. NPLATE [Suspect]
     Indication: MYELODYSPLASTIC SYNDROME
     Dates: start: 20101207
  2. CORTICOSTEROIDS [Concomitant]

REACTIONS (1)
  - BIOPSY BONE MARROW ABNORMAL [None]
